FAERS Safety Report 12113248 (Version 2)
Quarter: 2016Q1

REPORT INFORMATION
  Report Type: Spontaneous
  Country: PL (occurrence: PL)
  Receive Date: 20160225
  Receipt Date: 20160325
  Transmission Date: 20160526
  Serious: Yes (Death, Other)
  Sender: FDA-Public Use
  Company Number: PL-ROCHE-1714769

PATIENT

DRUGS (4)
  1. AZATHIOPRINE. [Concomitant]
     Active Substance: AZATHIOPRINE
     Route: 065
     Dates: start: 2012, end: 2014
  2. RITUXIMAB [Suspect]
     Active Substance: RITUXIMAB
     Indication: MICROSCOPIC POLYANGIITIS
  3. RITUXIMAB [Suspect]
     Active Substance: RITUXIMAB
     Indication: GRANULOMATOSIS WITH POLYANGIITIS
     Dosage: 4X375MG/M2
     Route: 042
     Dates: start: 201205, end: 201511
  4. METHOTREXATE [Concomitant]
     Active Substance: METHOTREXATE
     Route: 058
     Dates: start: 2012, end: 2014

REACTIONS (9)
  - Atrial fibrillation [Unknown]
  - Granulomatosis with polyangiitis [Unknown]
  - Urinary tract infection [Unknown]
  - Sudden cardiac death [Fatal]
  - Encephalitis viral [Unknown]
  - Bronchitis [Unknown]
  - Infection [Fatal]
  - Pneumonia [Unknown]
  - Coronary artery insufficiency [Unknown]
